FAERS Safety Report 23762363 (Version 2)
Quarter: 2024Q2

REPORT INFORMATION
  Report Type: Spontaneous
  Country: JP (occurrence: JP)
  Receive Date: 20240419
  Receipt Date: 20240425
  Transmission Date: 20240716
  Serious: Yes (Hospitalization)
  Sender: FDA-Public Use
  Company Number: JP-JNJFOC-20240444341

PATIENT
  Age: 29 Year
  Sex: Female
  Weight: 48 kg

DRUGS (10)
  1. STELARA [Suspect]
     Active Substance: USTEKINUMAB
     Indication: Colitis ulcerative
     Dosage: DOSE UNKNOWN
     Route: 065
     Dates: start: 20221028, end: 2024
  2. PREDNISOLONE [Concomitant]
     Active Substance: PREDNISOLONE
     Indication: Colitis ulcerative
     Route: 065
     Dates: start: 20220615, end: 202206
  3. PREDNISOLONE [Concomitant]
     Active Substance: PREDNISOLONE
     Indication: Colitis ulcerative
     Route: 065
     Dates: start: 20220629, end: 2022
  4. PREDNISOLONE [Concomitant]
     Active Substance: PREDNISOLONE
     Indication: Colitis ulcerative
     Dosage: DOSE UNKNOWN, GRADUALLY DECREASED
     Route: 065
     Dates: start: 2022, end: 2022
  5. PREDNISOLONE [Concomitant]
     Active Substance: PREDNISOLONE
     Indication: Colitis ulcerative
     Route: 065
     Dates: start: 20220926, end: 2022
  6. PREDNISOLONE [Concomitant]
     Active Substance: PREDNISOLONE
     Indication: Colitis ulcerative
     Dosage: DOSE UNKNOWN, GRADUALLY DECREASED
     Route: 065
     Dates: start: 20221001
  7. TACROLIMUS [Concomitant]
     Active Substance: TACROLIMUS
     Indication: Colitis ulcerative
     Dosage: DOSE UNKNOWN
     Route: 065
     Dates: start: 20221001
  8. TACROLIMUS [Concomitant]
     Active Substance: TACROLIMUS
     Indication: Colitis ulcerative
     Dosage: DOSE UNKNOWN
     Route: 065
     Dates: start: 20240110, end: 202403
  9. TACROLIMUS [Concomitant]
     Active Substance: TACROLIMUS
     Indication: Colitis ulcerative
     Dosage: DOSE UNKNOWN
     Route: 065
     Dates: start: 20240308
  10. UPADACITINIB [Concomitant]
     Active Substance: UPADACITINIB
     Indication: Colitis ulcerative
     Dosage: DOSE UNKNOWN
     Route: 065
     Dates: start: 20240326

REACTIONS (1)
  - Haematochezia [Unknown]

NARRATIVE: CASE EVENT DATE: 20231228
